FAERS Safety Report 8835305 (Version 1)
Quarter: 2012Q4

REPORT INFORMATION
  Report Type: 
  Country: CZ (occurrence: CZ)
  Receive Date: 20121011
  Receipt Date: 20121011
  Transmission Date: 20130627
  Serious: Yes (Life-Threatening, Other)
  Sender: FDA-Public Use
  Company Number: CZ-BRISTOL-MYERS SQUIBB COMPANY-17005125

PATIENT
  Age: 50 Year
  Sex: Female

DRUGS (3)
  1. ORENCIA FOR INJ 250 MG/VIAL [Suspect]
     Indication: RHEUMATOID ARTHRITIS
     Dosage: Stregth:250 mg
     Route: 042
     Dates: start: 20120517
  2. METHOTREXATE [Concomitant]
     Route: 058
  3. FOLIC ACID [Concomitant]
     Dosage: Tablets

REACTIONS (2)
  - Anaphylactic reaction [Recovered/Resolved]
  - Product solubility abnormal [Unknown]
